FAERS Safety Report 13330907 (Version 1)
Quarter: 2017Q1

REPORT INFORMATION
  Report Type: Spontaneous
  Country: ZA (occurrence: ZA)
  Receive Date: 20170314
  Receipt Date: 20170314
  Transmission Date: 20170428
  Serious: Yes (Death, Life-Threatening, Hospitalization, Other)
  Sender: FDA-Public Use
  Company Number: ZA-INDICUS PHARMA-000480

PATIENT
  Age: 19 Year
  Sex: Female

DRUGS (1)
  1. METFORMIN [Suspect]
     Active Substance: METFORMIN HYDROCHLORIDE
     Route: 048

REACTIONS (9)
  - Intentional overdose [Fatal]
  - Hypotension [Fatal]
  - Cardiac arrest [Unknown]
  - Metabolic acidosis [Fatal]
  - Coma scale abnormal [Not Recovered/Not Resolved]
  - Electrocardiogram QT prolonged [Unknown]
  - Tachypnoea [Unknown]
  - Blood creatinine increased [Unknown]
  - Hypoglycaemia [Unknown]
